FAERS Safety Report 8549904-9 (Version None)
Quarter: 2012Q3

REPORT INFORMATION
  Report Type: 
  Country: None (occurrence: None)
  Receive Date: 20120730
  Receipt Date: 20120414
  Transmission Date: 20120928
  Serious: No
  Sender: FDA-Public Use
  Company Number: US-GLAXOSMITHKLINE-A0974424A

PATIENT
  Age: 19 Year
  Sex: Male

DRUGS (1)
  1. SUMATRIPTAN [Suspect]
     Indication: MIGRAINE
     Route: 065

REACTIONS (3)
  - MALAISE [None]
  - ADVERSE DRUG REACTION [None]
  - DRUG INEFFECTIVE [None]
